FAERS Safety Report 10234248 (Version 2)
Quarter: 2014Q2

REPORT INFORMATION
  Report Type: Spontaneous
  Country: NL (occurrence: NL)
  Receive Date: 20140612
  Receipt Date: 20140620
  Transmission Date: 20141212
  Serious: Yes (Other)
  Sender: FDA-Public Use
  Company Number: CHPA2014NL007987

PATIENT
  Age: 39 Year
  Sex: Female

DRUGS (2)
  1. EXCEDRYN [Suspect]
     Indication: MIGRAINE
     Dosage: UNK
  2. AMITRIPTYLINE HCL [Concomitant]
     Indication: MUSCULOSKELETAL PAIN
     Dosage: 1 DF, QD
     Route: 048
     Dates: start: 20140110, end: 20140228

REACTIONS (3)
  - Arrhythmia [Recovered/Resolved]
  - Drug interaction [Unknown]
  - Drug ineffective [Unknown]
